FAERS Safety Report 22169521 (Version 5)
Quarter: 2023Q2

REPORT INFORMATION
  Report Type: Report from Study
  Country: DE (occurrence: DE)
  Receive Date: 20230404
  Receipt Date: 20230630
  Transmission Date: 20230721
  Serious: Yes (Other)
  Sender: FDA-Public Use
  Company Number: DE-MHRA-DE-BBB-23-00030

PATIENT
  Age: 11 Year
  Sex: Male
  Weight: 36 kg

DRUGS (14)
  1. PLERIXAFOR [Concomitant]
     Active Substance: PLERIXAFOR
     Indication: Haematopoietic stem cell mobilisation
     Dosage: UNK UNK
     Route: 058
     Dates: start: 20201211, end: 20201215
  2. FLUDARABINE PHOSPHATE [Concomitant]
     Active Substance: FLUDARABINE PHOSPHATE
     Indication: Bone marrow conditioning regimen
     Dosage: UNK UNK
     Dates: start: 20210120, end: 20210123
  3. BUSULFAN [Concomitant]
     Active Substance: BUSULFAN
     Indication: Bone marrow conditioning regimen
     Dosage: UNK UNK
     Dates: start: 20210120, end: 20210123
  4. HYDROCORTISONE [Concomitant]
     Active Substance: HYDROCORTISONE
     Indication: Adrenocortical insufficiency acute
     Dosage: UNK UNK
     Route: 048
     Dates: start: 20210222
  5. FLUDROCORTISONE [Concomitant]
     Active Substance: FLUDROCORTISONE
     Indication: Adrenocortical insufficiency acute
     Dosage: UNK UNK
     Route: 048
     Dates: start: 20210222
  6. SUMMAVIT [Concomitant]
     Indication: Prophylaxis
     Dosage: UNK UNK
     Route: 048
     Dates: start: 20210222
  7. VITAMIN D [Concomitant]
     Active Substance: VITAMIN D NOS
     Indication: Hypovitaminosis
     Dosage: UNK UNK
     Route: 048
     Dates: start: 2018
  8. MAGNESIUM [Concomitant]
     Active Substance: MAGNESIUM
     Indication: Hypovitaminosis
     Dosage: UNK UNK
     Route: 048
     Dates: start: 202207
  9. L-CARNITIN [Concomitant]
     Indication: Hypovitaminosis
     Dosage: UNK UNK
     Route: 048
     Dates: start: 202207
  10. OMEGA 3 [Concomitant]
     Active Substance: CAPSAICIN
     Indication: Hypovitaminosis
     Dosage: UNK UNK
     Route: 048
     Dates: start: 202207
  11. LECITHIN [Concomitant]
     Active Substance: LECITHIN
     Indication: Hypovitaminosis
     Dosage: UNK UNK
     Route: 048
     Dates: start: 202207
  12. VITAMIN C [Concomitant]
     Active Substance: ASCORBIC ACID
     Indication: Hypovitaminosis
     Dosage: UNK UNK
     Route: 048
     Dates: start: 2017
  13. RIBOFLAVIN VIT B2 [Concomitant]
     Indication: Hypovitaminosis
     Dosage: UNK UNK
     Route: 048
     Dates: start: 202211
  14. VITAMIN B12 [Concomitant]
     Active Substance: CYANOCOBALAMIN
     Indication: Hypovitaminosis
     Dosage: UNK UNK
     Route: 048
     Dates: start: 202211

REACTIONS (2)
  - Neutropenia [Not Recovered/Not Resolved]
  - Thrombocytopenia [Not Recovered/Not Resolved]

NARRATIVE: CASE EVENT DATE: 20230315
